FAERS Safety Report 12690994 (Version 1)
Quarter: 2016Q3

REPORT INFORMATION
  Report Type: Spontaneous
  Country: JP (occurrence: JP)
  Receive Date: 20160826
  Receipt Date: 20160826
  Transmission Date: 20161109
  Serious: Yes (Hospitalization)
  Sender: FDA-Public Use
  Company Number: PHJP2016JP023983

PATIENT
  Age: 53 Year
  Sex: Female

DRUGS (1)
  1. COMTAN [Suspect]
     Active Substance: ENTACAPONE
     Indication: PARKINSON^S DISEASE
     Dosage: 100 MG, UNK
     Route: 048

REACTIONS (1)
  - Heat illness [Recovered/Resolved]

NARRATIVE: CASE EVENT DATE: 20160721
